FAERS Safety Report 7496923-X (Version None)
Quarter: 2011Q2

REPORT INFORMATION
  Report Type: 
  Country: None (occurrence: None)
  Receive Date: 20110523
  Receipt Date: 20110509
  Transmission Date: 20111010
  Serious: Yes (Other)
  Sender: FDA-Public Use
  Company Number: US-MERCK-1105USA02596

PATIENT
  Age: 45 Year
  Sex: Female

DRUGS (7)
  1. ABILIFY [Concomitant]
     Route: 065
     Dates: start: 20020101
  2. ATROVENT [Concomitant]
     Route: 065
     Dates: start: 20010101
  3. SUMATRIPTAN SUCCINATE (IMITREX) [Suspect]
     Route: 065
     Dates: start: 20110502, end: 20110504
  4. ALBUTEROL [Concomitant]
     Route: 065
     Dates: start: 20010101
  5. PROVENTIL [Concomitant]
     Route: 065
     Dates: start: 20010101
  6. SINGULAIR [Suspect]
     Route: 048
     Dates: start: 20050101
  7. KLONOPIN [Concomitant]
     Route: 065
     Dates: start: 20030101

REACTIONS (5)
  - MUSCLE SPASMS [None]
  - MUSCULOSKELETAL STIFFNESS [None]
  - PARALYSIS [None]
  - MOVEMENT DISORDER [None]
  - TOXICITY TO VARIOUS AGENTS [None]
